FAERS Safety Report 14636559 (Version 2)
Quarter: 2018Q1

REPORT INFORMATION
  Report Type: Spontaneous
  Country: JP (occurrence: JP)
  Receive Date: 20180314
  Receipt Date: 20180314
  Transmission Date: 20180509
  Serious: Yes (Death, Other)
  Sender: FDA-Public Use
  Company Number: JP-SA-2018SA068388

PATIENT
  Age: 79 Year
  Sex: Male

DRUGS (1)
  1. JEVTANA [Suspect]
     Active Substance: CABAZITAXEL
     Indication: HORMONE-REFRACTORY PROSTATE CANCER
     Route: 042
     Dates: start: 20170220, end: 20170220

REACTIONS (5)
  - Febrile neutropenia [Unknown]
  - Liver disorder [Unknown]
  - Multiple organ dysfunction syndrome [Fatal]
  - Ileus [Unknown]
  - Infection [Unknown]
